FAERS Safety Report 9549464 (Version 1)
Quarter: 2013Q3

REPORT INFORMATION
  Report Type: Spontaneous
  Country: US (occurrence: None)
  Receive Date: 20130719
  Receipt Date: 20130719
  Transmission Date: 20140515
  Serious: Yes (Hospitalization)
  Sender: FDA-Public Use
  Company Number: 2012BAX024916

PATIENT
  Age: 64 Year
  Sex: Female
  Weight: 82.54 kg

DRUGS (8)
  1. CYCLOPHOSPHAMIDE [Suspect]
     Indication: BREAST CANCER METASTATIC
     Dates: start: 20070212
  2. DOXORUBICIN [Suspect]
     Indication: BREAST CANCER METASTATIC
     Dates: start: 20070212
  3. BEVACIZUMAB [Suspect]
     Indication: BREAST CANCER METASTATIC
     Dosage: 45.7143 MG (960 MG, 1 N 3
     Dates: start: 20070212
  4. PHYTONADIONE(PHYTOMENADIONE) [Concomitant]
  5. DEXTROSE(GLUCOSE) [Concomitant]
  6. WARFARIN SODIUM(WARFARIN SODIUM) [Concomitant]
  7. BLOOD CELLS, RED (RED BLOOD CELLS) [Concomitant]
  8. INSULIN(INSULIN) [Concomitant]

REACTIONS (1)
  - Febrile neutropenia [None]
